FAERS Safety Report 11846051 (Version 1)
Quarter: 2015Q4

REPORT INFORMATION
  Report Type: Spontaneous
  Country: SG (occurrence: SG)
  Receive Date: 20151217
  Receipt Date: 20151217
  Transmission Date: 20160305
  Serious: Yes (Other)
  Sender: FDA-Public Use
  Company Number: SG-BAYER-2015-488044

PATIENT
  Age: 38 Year
  Sex: Male

DRUGS (3)
  1. ACETYLSALICYLIC ACID (} 100 MG) [Suspect]
     Active Substance: ASPIRIN
  2. TETRACYCLINE [Suspect]
     Active Substance: TETRACYCLINE
  3. ERYTHROMYCIN. [Suspect]
     Active Substance: ERYTHROMYCIN

REACTIONS (1)
  - Angioedema [Unknown]

NARRATIVE: CASE EVENT DATE: 20151001
